FAERS Safety Report 4314964-8 (Version None)
Quarter: 2004Q1

REPORT INFORMATION
  Report Type: 
  Country: None (occurrence: None)
  Receive Date: 20040309
  Receipt Date: 20021218
  Transmission Date: 20041129
  Serious: Yes (Death, Hospitalization)
  Sender: FDA-Public Use
  Company Number: 2002IC000351

PATIENT
  Age: 58 Year
  Sex: Male

DRUGS (5)
  1. 5-FLUOROURACIL (FLUOROURACIL) [Suspect]
     Indication: RECTAL CANCER
     Dosage: 1100 MG; INTRAVENOUS
     Route: 042
     Dates: start: 20020318, end: 20020325
  2. ISOVORIN [Suspect]
     Dosage: 450 MG; INTRAVENOUS
     Route: 042
     Dates: start: 20020318, end: 20020325
  3. AMINOFLUID [Concomitant]
  4. FERRO-GRADUMET [Concomitant]
  5. KYTRIL [Concomitant]

REACTIONS (9)
  - BONE MARROW DEPRESSION [None]
  - CONVULSION [None]
  - DIARRHOEA [None]
  - HEPATORENAL FAILURE [None]
  - METASTASES TO CENTRAL NERVOUS SYSTEM [None]
  - MONOPLEGIA [None]
  - MULTI-ORGAN FAILURE [None]
  - RESPIRATORY FAILURE [None]
  - THROMBOCYTOPENIA [None]
